FAERS Safety Report 6678016-4 (Version None)
Quarter: 2010Q2

REPORT INFORMATION
  Report Type: 
  Country: None (occurrence: None)
  Receive Date: 20100412
  Receipt Date: 20100311
  Transmission Date: 20101027
  Serious: No
  Sender: FDA-Public Use
  Company Number: US-BAYER-201013019BCC

PATIENT
  Age: 56 Year
  Sex: Female
  Weight: 55 kg

DRUGS (4)
  1. ALEVE [Suspect]
     Indication: BACK PAIN
     Dosage: AS USED: 440/220/220 MG  UNIT DOSE: 220 MG
     Route: 048
     Dates: start: 20091201
  2. VITAMIN D [Concomitant]
     Route: 065
  3. VITAMIN B COMPLEX TAB [Concomitant]
     Route: 065
  4. ZINC [Concomitant]
     Route: 065

REACTIONS (1)
  - BACK PAIN [None]
